FAERS Safety Report 6738704-8 (Version None)
Quarter: 2010Q2

REPORT INFORMATION
  Report Type: 
  Country: None (occurrence: None)
  Receive Date: 20100524
  Receipt Date: 20100510
  Transmission Date: 20101027
  Serious: Yes (Other)
  Sender: FDA-Public Use
  Company Number: GB-MYLANLABS-2009S1015195

PATIENT
  Age: 40 Year
  Sex: Male

DRUGS (10)
  1. MIRTAZAPINE [Suspect]
     Indication: METABOLIC SYNDROME
  2. RISPERIDONE [Suspect]
     Indication: METABOLIC SYNDROME
  3. RISPERIDONE [Suspect]
     Indication: SCHIZOAFFECTIVE DISORDER
  4. SODIUM VALPROATE [Suspect]
     Indication: DRUG USE FOR UNKNOWN INDICATION
  5. ABILIFY [Suspect]
     Indication: METABOLIC SYNDROME
     Route: 048
     Dates: start: 20081001
  6. ABILIFY [Suspect]
     Indication: SCHIZOAFFECTIVE DISORDER
     Route: 048
     Dates: start: 20081001
  7. DULOXETINE HYDROCHLORIDE [Suspect]
     Indication: DRUG USE FOR UNKNOWN INDICATION
  8. QUETIAPINE [Suspect]
     Indication: DRUG USE FOR UNKNOWN INDICATION
  9. EFFEXOR [Concomitant]
     Indication: DEPRESSION
     Route: 048
  10. LITHIUM CARBONATE [Concomitant]
     Indication: DRUG USE FOR UNKNOWN INDICATION
     Route: 048

REACTIONS (3)
  - HYPOTHYROIDISM [None]
  - LIVER FUNCTION TEST ABNORMAL [None]
  - METABOLIC SYNDROME [None]
